FAERS Safety Report 18766095 (Version 1)
Quarter: 2021Q1

REPORT INFORMATION
  Report Type: Spontaneous
  Country: US (occurrence: US)
  Receive Date: 20210121
  Receipt Date: 20210121
  Transmission Date: 20210419
  Serious: Yes (Hospitalization)
  Sender: FDA-Public Use
  Company Number: US-CADILA HEALTHCARE LIMITED-US-ZYDUS-061154

PATIENT

DRUGS (1)
  1. BUPROPION. [Suspect]
     Active Substance: BUPROPION
     Indication: PRODUCT USED FOR UNKNOWN INDICATION
     Dosage: 180 TABLETS OF 150 MG EXTENDED?RELEASE
     Route: 048

REACTIONS (7)
  - Pulseless electrical activity [Unknown]
  - Generalised tonic-clonic seizure [Recovered/Resolved]
  - Pupil fixed [Recovered/Resolved]
  - Toxicity to various agents [Unknown]
  - Overdose [Unknown]
  - Hypotension [Unknown]
  - Dyskinesia [Recovered/Resolved]
